FAERS Safety Report 5850355-6 (Version None)
Quarter: 2008Q3

REPORT INFORMATION
  Report Type: 
  Country: None (occurrence: None)
  Receive Date: 20080731
  Receipt Date: 20080412
  Transmission Date: 20090109
  Serious: No
  Sender: FDA-Public Use
  Company Number: US200804003460

PATIENT
  Age: 63 Year
  Sex: Male
  Weight: 79.8 kg

DRUGS (1)
  1. BYETTA [Suspect]
     Indication: TYPE 2 DIABETES MELLITUS
     Dosage: 5 UG, 2/D, SUBCUTANEOUS
     Route: 058
     Dates: start: 20071011

REACTIONS (5)
  - BLOOD GLUCOSE INCREASED [None]
  - MALAISE [None]
  - PRURITUS [None]
  - RASH VESICULAR [None]
  - WEIGHT INCREASED [None]
